FAERS Safety Report 8598428-1 (Version None)
Quarter: 2012Q3

REPORT INFORMATION
  Report Type: 
  Country: None (occurrence: None)
  Receive Date: 20120806
  Receipt Date: 20120806
  Transmission Date: 20120928
  Serious: Yes (Hospitalization)
  Sender: FDA-Public Use
  Company Number: None

PATIENT
  Sex: Female
  Weight: 61.69 kg

DRUGS (6)
  1. ERBITUX [Suspect]
     Dosage: SEE IMAGE
     Dates: start: 20120709
  2. ERBITUX [Suspect]
     Dosage: SEE IMAGE
     Dates: start: 20120625
  3. ERBITUX [Suspect]
     Dosage: SEE IMAGE
     Dates: start: 20120716
  4. ERBITUX [Suspect]
     Dosage: SEE IMAGE
     Dates: start: 20120702
  5. ERBITUX [Suspect]
     Dosage: SEE IMAGE
     Dates: start: 20120723
  6. ERBITUX [Suspect]
     Dosage: SEE IMAGE
     Dates: start: 20120730

REACTIONS (3)
  - DYSPHAGIA [None]
  - ODYNOPHAGIA [None]
  - TACHYCARDIA [None]
